FAERS Safety Report 15020335 (Version 1)
Quarter: 2018Q2

REPORT INFORMATION
  Report Type: Spontaneous
  Country: US (occurrence: US)
  Receive Date: 20180618
  Receipt Date: 20180618
  Transmission Date: 20180711
  Serious: Yes (Other)
  Sender: FDA-Public Use
  Company Number: US-009507513-1806USA006071

PATIENT
  Age: 69 Year
  Sex: Female

DRUGS (5)
  1. SINGULAIR [Suspect]
     Active Substance: MONTELUKAST SODIUM
     Indication: PRODUCT USED FOR UNKNOWN INDICATION
     Dosage: UNK
  2. ALEVE [Interacting]
     Active Substance: NAPROXEN SODIUM
     Indication: PRODUCT USED FOR UNKNOWN INDICATION
     Dosage: UNK
  3. TRELEGY ELLIPTA [Interacting]
     Active Substance: FLUTICASONE FUROATE\UMECLIDINIUM BROMIDE\VILANTEROL TRIFENATATE
     Indication: ASTHMA
     Dosage: 1 PUFF(S), DAILY
     Dates: start: 20180517
  4. ADVAIR HFA [Suspect]
     Active Substance: FLUTICASONE PROPIONATE\SALMETEROL XINAFOATE
     Indication: ASTHMA
     Dosage: 1 PUFF(S), BID
     Dates: end: 20180516
  5. VERAPAMIL [Interacting]
     Active Substance: VERAPAMIL HYDROCHLORIDE
     Indication: PRODUCT USED FOR UNKNOWN INDICATION

REACTIONS (12)
  - Optic nerve neoplasm [Unknown]
  - Drug interaction [Unknown]
  - Contrast media reaction [Unknown]
  - Pain [Recovering/Resolving]
  - Pulmonary mass [Unknown]
  - Myalgia [Unknown]
  - Drug dose omission [Unknown]
  - Blindness unilateral [Not Recovered/Not Resolved]
  - Hypoaesthesia [Unknown]
  - Insomnia [Recovering/Resolving]
  - Back pain [Unknown]
  - Arthritis [Unknown]

NARRATIVE: CASE EVENT DATE: 201804
